FAERS Safety Report 23233306 (Version 1)
Quarter: 2023Q4

REPORT INFORMATION
  Report Type: Report from Study
  Country: JP (occurrence: JP)
  Receive Date: 20231128
  Receipt Date: 20231128
  Transmission Date: 20240109
  Serious: Yes (Hospitalization, Other)
  Sender: FDA-Public Use
  Company Number: JP-CHUGAI-2023039543

PATIENT
  Age: 59 Year
  Sex: Male
  Weight: 53 kg

DRUGS (4)
  1. ATEZOLIZUMAB [Suspect]
     Active Substance: ATEZOLIZUMAB
     Indication: Non-small cell lung cancer
     Dosage: 1200 MILLIGRAM, UNK
     Route: 065
     Dates: start: 20231003, end: 20231024
  2. CARBOPLATIN [Concomitant]
     Active Substance: CARBOPLATIN
     Indication: Non-small cell lung cancer
     Dosage: 726 MILLIGRAM, UNK
     Dates: start: 20231003, end: 20231024
  3. PACLITAXEL [Concomitant]
     Active Substance: PACLITAXEL
     Indication: Non-small cell lung cancer
     Dosage: 159 MILLIGRAM, UNK
     Dates: start: 20231003, end: 20231024
  4. FLUTICASONE PROPIONATE\FORMOTEROL FUMARATE [Concomitant]
     Active Substance: FLUTICASONE PROPIONATE\FORMOTEROL FUMARATE
     Indication: Asthma
     Dosage: UNK, BID
     Dates: start: 20230915

REACTIONS (2)
  - Cardiac tamponade [Recovering/Resolving]
  - Pericarditis malignant [Unknown]

NARRATIVE: CASE EVENT DATE: 20231031
